FAERS Safety Report 6309667-4 (Version None)
Quarter: 2009Q3

REPORT INFORMATION
  Report Type: 
  Country: None (occurrence: None)
  Receive Date: 20090814
  Receipt Date: 20090812
  Transmission Date: 20100115
  Serious: No
  Sender: FDA-Public Use
  Company Number: US-B.I. PHARMACEUTICALS,INC./RIDGEFIELD-2009-BP-09499BP

PATIENT
  Sex: Male

DRUGS (2)
  1. FLOMAX [Suspect]
     Dosage: 0.4 MG
     Route: 048
     Dates: start: 20090701, end: 20090801
  2. FLOMAX [Suspect]
     Dosage: 0.8 MG
     Route: 048
     Dates: start: 20090801, end: 20090808

REACTIONS (1)
  - PARKINSON'S DISEASE [None]
